FAERS Safety Report 19809296 (Version 1)
Quarter: 2021Q3

REPORT INFORMATION
  Report Type: Spontaneous
  Country: US (occurrence: US)
  Receive Date: 20210908
  Receipt Date: 20210908
  Transmission Date: 20211014
  Serious: Yes (Hospitalization, Other)
  Sender: FDA-Public Use
  Company Number: US-PRAGMA-2021-US-019549

PATIENT
  Age: 80 Year
  Sex: Female
  Weight: 81.2 kg

DRUGS (6)
  1. LETAIRIS [Concomitant]
     Active Substance: AMBRISENTAN
     Route: 065
  2. KEFLEX [Suspect]
     Active Substance: CEPHALEXIN
     Indication: PRODUCT USED FOR UNKNOWN INDICATION
  3. ELIQUIS [Concomitant]
     Active Substance: APIXABAN
     Route: 065
  4. REMODULIN [Suspect]
     Active Substance: TREPROSTINIL
     Dosage: 0.08503 ?G/KG, CONTINUING, IV DRIP
     Route: 042
     Dates: start: 20191107
  5. IODINE. [Suspect]
     Active Substance: IODINE
     Route: 065
  6. TADALAFIL. [Concomitant]
     Active Substance: TADALAFIL
     Route: 065

REACTIONS (7)
  - Oral pruritus [Unknown]
  - Malaise [Unknown]
  - Blood potassium decreased [Unknown]
  - Agitation [Unknown]
  - Frequent bowel movements [Unknown]
  - Diarrhoea [Unknown]
  - Vascular device infection [Unknown]

NARRATIVE: CASE EVENT DATE: 20210528
